FAERS Safety Report 7532449-2 (Version None)
Quarter: 2011Q2

REPORT INFORMATION
  Report Type: 
  Country: None (occurrence: None)
  Receive Date: 20110601
  Receipt Date: 20110518
  Transmission Date: 20111010
  Serious: No
  Sender: FDA-Public Use
  Company Number: 2011-1006579

PATIENT
  Age: 53 Year
  Sex: Male
  Weight: 115.6672 kg

DRUGS (8)
  1. FENTANYL-75 [Suspect]
     Indication: TRAUMATIC LUNG INJURY
     Dosage: 1 PATCH; X1, 1 PATCH; Q48;TDER
     Route: 062
     Dates: start: 20110418, end: 20110418
  2. FENTANYL-75 [Suspect]
     Indication: RIB FRACTURE
     Dosage: 1 PATCH; X1, 1 PATCH; Q48;TDER
     Route: 062
     Dates: start: 20110418, end: 20110418
  3. FENTANYL-75 [Suspect]
     Indication: PAIN
     Dosage: 1 PATCH; X1, 1 PATCH; Q48;TDER
     Route: 062
     Dates: start: 20110418, end: 20110418
  4. FENTANYL-75 [Suspect]
     Indication: UPPER LIMB FRACTURE
     Dosage: 1 PATCH; X1, 1 PATCH; Q48;TDER
     Route: 062
     Dates: start: 20110418, end: 20110418
  5. FENTANYL-75 [Suspect]
     Indication: TRAUMATIC LUNG INJURY
     Dosage: 1 PATCH; X1, 1 PATCH; Q48;TDER
     Route: 062
     Dates: start: 20110420
  6. FENTANYL-75 [Suspect]
     Indication: RIB FRACTURE
     Dosage: 1 PATCH; X1, 1 PATCH; Q48;TDER
     Route: 062
     Dates: start: 20110420
  7. FENTANYL-75 [Suspect]
     Indication: PAIN
     Dosage: 1 PATCH; X1, 1 PATCH; Q48;TDER
     Route: 062
     Dates: start: 20110420
  8. FENTANYL-75 [Suspect]
     Indication: UPPER LIMB FRACTURE
     Dosage: 1 PATCH; X1, 1 PATCH; Q48;TDER
     Route: 062
     Dates: start: 20110420

REACTIONS (4)
  - TREMOR [None]
  - PRODUCT SUBSTITUTION ISSUE [None]
  - FEELING ABNORMAL [None]
  - DRUG EFFECT DECREASED [None]
